FAERS Safety Report 16282206 (Version 2)
Quarter: 2019Q2

REPORT INFORMATION
  Report Type: Spontaneous
  Country: US (occurrence: US)
  Receive Date: 20190507
  Receipt Date: 20190523
  Transmission Date: 20190711
  Serious: Yes (Other)
  Sender: FDA-Public Use
  Company Number: US-AKORN PHARMACEUTICALS-2019AKN00933

PATIENT
  Age: 31 Year
  Sex: Female
  Weight: 59.86 kg

DRUGS (4)
  1. TRAZODONE [Concomitant]
     Active Substance: TRAZODONE HYDROCHLORIDE
  2. MYORISAN [Suspect]
     Active Substance: ISOTRETINOIN
     Indication: ACNE
     Dosage: 30 MG, 2X/DAY
     Route: 048
     Dates: start: 20181211, end: 20190422
  3. SPIRONOLACTONE. [Concomitant]
     Active Substance: SPIRONOLACTONE
  4. VALTREX [Concomitant]
     Active Substance: VALACYCLOVIR HYDROCHLORIDE

REACTIONS (9)
  - Headache [Unknown]
  - Epistaxis [Unknown]
  - Myalgia [Unknown]
  - Arthralgia [Unknown]
  - Anxiety [Unknown]
  - Muscular weakness [Unknown]
  - Vision blurred [Unknown]
  - Back pain [Unknown]
  - Lip dry [Unknown]

NARRATIVE: CASE EVENT DATE: 201902
